FAERS Safety Report 7525092-2 (Version None)
Quarter: 2011Q2

REPORT INFORMATION
  Report Type: 
  Country: None (occurrence: None)
  Receive Date: 20110606
  Receipt Date: 20110527
  Transmission Date: 20111010
  Serious: Yes (Hospitalization)
  Sender: FDA-Public Use
  Company Number: US-AMGEN-USASP2011027802

PATIENT
  Age: 66 Year
  Sex: Female

DRUGS (1)
  1. ENBREL [Suspect]
     Indication: RHEUMATOID ARTHRITIS
     Dosage: 25 MG, 2 TIMES/WK
     Dates: start: 20030201

REACTIONS (10)
  - RHEUMATOID ARTHRITIS [None]
  - BACK PAIN [None]
  - HERPES ZOSTER [None]
  - HIP FRACTURE [None]
  - MUSCLE STRAIN [None]
  - ARTHRALGIA [None]
  - BONE PAIN [None]
  - IMPAIRED HEALING [None]
  - DYSSTASIA [None]
  - FALL [None]
